FAERS Safety Report 16358755 (Version 2)
Quarter: 2019Q2

REPORT INFORMATION
  Report Type: Spontaneous
  Country: JP (occurrence: JP)
  Receive Date: 20190527
  Receipt Date: 20190605
  Transmission Date: 20190711
  Serious: Yes (Hospitalization, Other)
  Sender: FDA-Public Use
  Company Number: PHJP2019JP002326

PATIENT
  Age: 57 Year
  Sex: Female
  Weight: 64 kg

DRUGS (12)
  1. BREDININ [Concomitant]
     Active Substance: MIZORIBINE
     Indication: RHEUMATOID ARTHRITIS
     Dosage: 300 MG BID (AFTER BREAKFAST AND DINNER) ON WEDNESDAYS, 150 MG QD (AFTER BREAKFAST) ON THURSDAYS
     Route: 048
     Dates: start: 201901
  2. BONOTEO [Concomitant]
     Active Substance: MINODRONIC ACID
     Indication: OSTEOPOROSIS
     Dosage: 50 MG, Q4W (ON AWAKENING)
     Route: 048
  3. TACROLIMUS MONOHYDRATE [Concomitant]
     Active Substance: TACROLIMUS
     Indication: RHEUMATOID ARTHRITIS
     Dosage: 3 MG, QD (AFTER DINNER)
     Route: 048
  4. COSENTYX [Suspect]
     Active Substance: SECUKINUMAB
     Indication: PSORIASIS
     Dosage: 300 MG, QW
     Route: 058
     Dates: start: 20181225, end: 20190122
  5. CYTOTEC [Concomitant]
     Active Substance: MISOPROSTOL
     Indication: GASTROINTESTINAL DISORDER PROPHYLAXIS
     Dosage: 200 UG, BID (AFTER BREAKFAST AND DINNER)
     Route: 048
  6. URSODEOXYCHOLIC ACID [Concomitant]
     Active Substance: URSODIOL
     Indication: LIVER DISORDER
     Dosage: 100 MG, TID (EVERY AFTER MEAL)
     Route: 048
  7. AZULFIDINE EN-TABS [Concomitant]
     Active Substance: SULFASALAZINE
     Indication: RHEUMATOID ARTHRITIS
     Dosage: 1000 MG, QD (AFTER BREAKFAST)
     Route: 048
  8. PITAVASTATIN CA [Concomitant]
     Active Substance: PITAVASTATIN CALCIUM
     Indication: HYPERLIPIDAEMIA
     Dosage: 1 MG, QD (AFTER DINNER)
     Route: 048
  9. METHOTREXATE. [Concomitant]
     Active Substance: METHOTREXATE
     Indication: RHEUMATOID ARTHRITIS
     Dosage: 4 MG BID (AFTER BREAKFAST AND DINNER) ON WEDNESDAYS, 2 MG QD (AFTER BREAKFAST) ON THURSDAYS
     Route: 048
  10. FOLIAMIN [Concomitant]
     Active Substance: FOLIC ACID
     Indication: PROPHYLAXIS
     Dosage: 10 MG, QW (AFTER BREAKFAST ON SATURDAYS)
     Route: 048
  11. DICLOFENAC [Concomitant]
     Active Substance: DICLOFENAC
     Indication: ANALGESIC THERAPY
     Dosage: 37.5 MG, BID (AFTER BREAKFAST AND DINNER)
     Route: 048
  12. PREDNISOLONE. [Concomitant]
     Active Substance: PREDNISOLONE
     Indication: RHEUMATOID ARTHRITIS
     Dosage: 4 MG, QD (AFTER BREAKFAST)
     Route: 048

REACTIONS (8)
  - Weight decreased [Unknown]
  - Pruritus [Recovered/Resolved]
  - Clostridium difficile infection [Recovering/Resolving]
  - Abdominal pain [Unknown]
  - Diarrhoea [Not Recovered/Not Resolved]
  - Dehydration [Unknown]
  - C-reactive protein increased [Unknown]
  - Decreased appetite [Unknown]

NARRATIVE: CASE EVENT DATE: 20181226
